FAERS Safety Report 5776775-6 (Version None)
Quarter: 2008Q2

REPORT INFORMATION
  Report Type: 
  Country: None (occurrence: None)
  Receive Date: 20080618
  Receipt Date: 20080609
  Transmission Date: 20081010
  Serious: Yes (Other)
  Sender: FDA-Public Use
  Company Number: US-WYE-H04416908

PATIENT
  Age: 64 Year
  Sex: Female
  Weight: 79.45 kg

DRUGS (4)
  1. EFFEXOR XR [Suspect]
     Indication: PAIN OF SKIN
     Route: 048
     Dates: start: 20020101
  2. EFFEXOR XR [Suspect]
     Indication: COLLAGEN-VASCULAR DISEASE
     Route: 048
     Dates: end: 20080401
  3. LYRICA [Concomitant]
     Dosage: UNKNOWN
     Dates: start: 20060101
  4. ACIPHEX [Concomitant]
     Dosage: UNKNOWN

REACTIONS (3)
  - DRUG WITHDRAWAL SYNDROME [None]
  - HOMICIDAL IDEATION [None]
  - SUICIDAL IDEATION [None]
